FAERS Safety Report 13109345 (Version 1)
Quarter: 2017Q1

REPORT INFORMATION
  Report Type: Spontaneous
  Country: US (occurrence: US)
  Receive Date: 20170112
  Receipt Date: 20170112
  Transmission Date: 20170428
  Serious: No
  Sender: FDA-Public Use
  Company Number: US-UNIQUE PHARMACEUTICAL LABORATORIES-2016RIS00157

PATIENT
  Age: 75 Year
  Sex: Female
  Weight: 74.83 kg

DRUGS (10)
  1. TRIAMTERENE-HCTZ [Concomitant]
     Active Substance: HYDROCHLOROTHIAZIDE\TRIAMTERENE
     Dosage: 1 DOSAGE UNITS, 1X/DAY
  2. DICLOFENAC SODIUM DELAYED-RELEASE TABLETS USP 50MG [Suspect]
     Active Substance: DICLOFENAC SODIUM
     Indication: FOOT OPERATION
     Dosage: 50 MG, 2X/DAY
     Route: 048
     Dates: start: 20160902, end: 201609
  3. TRAZODONE [Concomitant]
     Active Substance: TRAZODONE HYDROCHLORIDE
     Dosage: 75 MG, 1X/DAY
  4. SIMVASTATIN. [Concomitant]
     Active Substance: SIMVASTATIN
     Dosage: 20 MG, 1X/DAY
  5. LISINOPRIL. [Concomitant]
     Active Substance: LISINOPRIL
     Dosage: 40 MG, 1X/DAY
  6. LYRICA [Concomitant]
     Active Substance: PREGABALIN
     Dosage: 100 MG, 1X/DAY
  7. FEXOFENADINE [Concomitant]
     Active Substance: FEXOFENADINE\FEXOFENADINE HYDROCHLORIDE
     Dosage: 180 MG, 1X/DAY
  8. DICLOFENAC SODIUM DELAYED-RELEASE TABLETS USP 50MG [Suspect]
     Active Substance: DICLOFENAC SODIUM
     Dosage: 50 MG, 2X/DAY
     Route: 048
     Dates: start: 20160929
  9. HYDROCODONE BITARTRATE AND ACETAMINOPHEN [Suspect]
     Active Substance: ACETAMINOPHEN\HYDROCODONE BITARTRATE
     Indication: FOOT OPERATION
     Dosage: UNK
     Dates: start: 20160902, end: 201609
  10. ESCITALOPRAM [Concomitant]
     Active Substance: ESCITALOPRAM OXALATE
     Dosage: 20 MG, 1X/DAY

REACTIONS (2)
  - Constipation [Recovered/Resolved]
  - Diarrhoea [Not Recovered/Not Resolved]

NARRATIVE: CASE EVENT DATE: 201609
